FAERS Safety Report 25210413 (Version 2)
Quarter: 2025Q2

REPORT INFORMATION
  Report Type: Spontaneous
  Country: ES (occurrence: ES)
  Receive Date: 20250417
  Receipt Date: 20250508
  Transmission Date: 20250717
  Serious: Yes (Death, Congenital Anomaly)
  Sender: TAKEDA
  Company Number: None

PATIENT
  Age: 20 Week
  Sex: Female

DRUGS (2)
  1. ENTYVIO [Suspect]
     Active Substance: VEDOLIZUMAB
     Indication: Colitis ulcerative
     Route: 064
  2. MESALAMINE [Suspect]
     Active Substance: MESALAMINE
     Indication: Colitis ulcerative
     Route: 064

REACTIONS (1)
  - Congenital central nervous system anomaly [Fatal]

NARRATIVE: CASE EVENT DATE: 20250217
